FAERS Safety Report 18756782 (Version 8)
Quarter: 2021Q3

REPORT INFORMATION
  Report Type: Report from Study
  Country: CA (occurrence: CA)
  Receive Date: 20210119
  Receipt Date: 20210802
  Transmission Date: 20211014
  Serious: Yes (Hospitalization)
  Sender: FDA-Public Use
  Company Number: CA-JNJFOC-20210115236

PATIENT
  Age: 70 Year
  Sex: Female
  Weight: 123 kg

DRUGS (5)
  1. REMICADE [Suspect]
     Active Substance: INFLIXIMAB
     Indication: CROHN^S DISEASE
     Route: 042
     Dates: start: 20201112
  2. PREDNISONE. [Concomitant]
     Active Substance: PREDNISONE
     Indication: PRODUCT USED FOR UNKNOWN INDICATION
     Route: 048
  3. REMICADE [Suspect]
     Active Substance: INFLIXIMAB
     Dosage: ON 28?APR?2021, THE PATIENT RECEIVED 5TH INFLIXIMAB INFUSION FOR DOSE OF 700 MG.
     Route: 042
  4. REMICADE [Suspect]
     Active Substance: INFLIXIMAB
     Route: 042
  5. REMICADE [Suspect]
     Active Substance: INFLIXIMAB
     Dosage: STAT DOSE OF 700 MG
     Route: 042

REACTIONS (11)
  - Alopecia [Not Recovered/Not Resolved]
  - Salmonellosis [Not Recovered/Not Resolved]
  - Frequent bowel movements [Recovering/Resolving]
  - Abdominal pain [Recovered/Resolved]
  - Arthralgia [Not Recovered/Not Resolved]
  - Blood creatinine increased [Unknown]
  - Mucous stools [Unknown]
  - Oropharyngeal pain [Recovering/Resolving]
  - Diarrhoea [Not Recovered/Not Resolved]
  - Joint swelling [Unknown]
  - Dermatitis acneiform [Recovering/Resolving]

NARRATIVE: CASE EVENT DATE: 20210112
